FAERS Safety Report 8080930-2 (Version None)
Quarter: 2012Q1

REPORT INFORMATION
  Report Type: 
  Country: None (occurrence: None)
  Receive Date: 20120130
  Receipt Date: 20120123
  Transmission Date: 20120608
  Serious: Yes (Death)
  Sender: FDA-Public Use
  Company Number: US-ALEXION-A201200119

PATIENT
  Age: 81 Year
  Sex: Male

DRUGS (1)
  1. SOLIRIS [Suspect]
     Dosage: UNK, SINGLE
     Route: 042
     Dates: start: 20120121, end: 20120121

REACTIONS (1)
  - DEATH [None]
